FAERS Safety Report 17278748 (Version 1)
Quarter: 2020Q1

REPORT INFORMATION
  Report Type: Spontaneous
  Country: FR (occurrence: FR)
  Receive Date: 20200116
  Receipt Date: 20200116
  Transmission Date: 20200409
  Serious: Yes (Hospitalization)
  Sender: FDA-Public Use
  Company Number: FR-MYLANLABS-2020M1005124

PATIENT
  Age: 66 Year
  Sex: Female
  Weight: 83 kg

DRUGS (2)
  1. PANTOPRAZOLE [Suspect]
     Active Substance: PANTOPRAZOLE
     Indication: PRODUCT USED FOR UNKNOWN INDICATION
     Dosage: 40 MILLIGRAM, QD
     Route: 048
  2. RISEDRONATE SODIUM HEMI-PENTAHYDRATE [Suspect]
     Active Substance: RISEDRONATE SODIUM HEMI-PENTAHYDRATE
     Indication: OSTEOPOROSIS
     Dosage: 35 MILLIGRAM, QD
     Route: 048
     Dates: start: 2014

REACTIONS (1)
  - Thoracic vertebral fracture [Not Recovered/Not Resolved]

NARRATIVE: CASE EVENT DATE: 20190806
